FAERS Safety Report 12359350 (Version 1)
Quarter: 2016Q2

REPORT INFORMATION
  Report Type: Spontaneous
  Country: US (occurrence: None)
  Receive Date: 20160511
  Receipt Date: 20160511
  Transmission Date: 20160815
  Serious: No
  Sender: FDA-Public Use
  Company Number: None

PATIENT
  Age: 52 Year
  Sex: Female

DRUGS (1)
  1. HARVONI [Suspect]
     Active Substance: LEDIPASVIR\SOFOSBUVIR
     Indication: HEPATITIS C
     Dosage: 90-400 MG QD ORAL
     Route: 048

REACTIONS (4)
  - Arthralgia [None]
  - Confusional state [None]
  - Myalgia [None]
  - Depressed level of consciousness [None]

NARRATIVE: CASE EVENT DATE: 20160510
